FAERS Safety Report 17203566 (Version 1)
Quarter: 2019Q4

REPORT INFORMATION
  Report Type: Spontaneous
  Country: US (occurrence: US)
  Receive Date: 20191226
  Receipt Date: 20191226
  Transmission Date: 20200122
  Serious: No
  Sender: FDA-Public Use
  Company Number: US-CATALYST PHARMACEUTICALS, INC-2019CAT00397

PATIENT
  Sex: Male
  Weight: 83.9 kg

DRUGS (11)
  1. PRAVASTATIN. [Concomitant]
     Active Substance: PRAVASTATIN
  2. TRAMADOL. [Concomitant]
     Active Substance: TRAMADOL
  3. MESTINON [Concomitant]
     Active Substance: PYRIDOSTIGMINE BROMIDE
  4. FIRDAPSE [Suspect]
     Active Substance: AMIFAMPRIDINE
     Indication: MYASTHENIC SYNDROME
     Dosage: 20 MG, 2X/DAY (MORNING AND EVENING)
     Route: 048
     Dates: start: 20190215, end: 201909
  5. FIRDAPSE [Suspect]
     Active Substance: AMIFAMPRIDINE
     Dosage: 40 MG PER DAY
     Route: 048
     Dates: start: 201909
  6. PRADAXA [Concomitant]
     Active Substance: DABIGATRAN ETEXILATE MESYLATE
  7. PREVACID [Concomitant]
     Active Substance: LANSOPRAZOLE
  8. TIKOSYN [Concomitant]
     Active Substance: DOFETILIDE
  9. METOPROLOL. [Concomitant]
     Active Substance: METOPROLOL
  10. FIRDAPSE [Suspect]
     Active Substance: AMIFAMPRIDINE
     Dosage: 10 MG, 2X/DAY (NOON AND NIGHT)
     Route: 048
     Dates: start: 20190215, end: 201909
  11. NADOLOL. [Concomitant]
     Active Substance: NADOLOL

REACTIONS (5)
  - Pruritus [Recovered/Resolved]
  - Paraesthesia oral [Not Recovered/Not Resolved]
  - Urticaria [Recovered/Resolved]
  - Paraesthesia [Not Recovered/Not Resolved]
  - Unevaluable event [Unknown]

NARRATIVE: CASE EVENT DATE: 2019
